FAERS Safety Report 18710932 (Version 1)
Quarter: 2021Q1

REPORT INFORMATION
  Report Type: Report from Study
  Country: IL (occurrence: IL)
  Receive Date: 20210107
  Receipt Date: 20210107
  Transmission Date: 20210419
  Serious: Yes (Other)
  Sender: FDA-Public Use
  Company Number: IL-TAKEDA-2020TUS061256

PATIENT
  Sex: Male

DRUGS (4)
  1. GLYCERINE [Concomitant]
     Active Substance: GLYCERIN
     Dosage: UNK
  2. NORMALAX [BISACODYL] [Concomitant]
     Dosage: UNK
  3. LAXADIN [Concomitant]
     Active Substance: BISACODYL
     Dosage: UNK
  4. VEDOLIZUMAB [Suspect]
     Active Substance: VEDOLIZUMAB
     Indication: CROHN^S DISEASE
     Dosage: 300 MILLIGRAM
     Route: 042
     Dates: start: 20191016

REACTIONS (1)
  - Large intestine polyp [Not Recovered/Not Resolved]
